FAERS Safety Report 24878457 (Version 1)
Quarter: 2025Q1

REPORT INFORMATION
  Report Type: Spontaneous
  Country: US (occurrence: None)
  Receive Date: 20250122
  Receipt Date: 20250122
  Transmission Date: 20250408
  Serious: No
  Sender: FDA-CTU
  Company Number: None

PATIENT
  Age: 52 Year
  Sex: Female
  Weight: 100.8 kg

DRUGS (1)
  1. ZEPBOUND [Suspect]
     Active Substance: TIRZEPATIDE

REACTIONS (2)
  - Paraesthesia [None]
  - Paraesthesia [None]

NARRATIVE: CASE EVENT DATE: 20241216
